FAERS Safety Report 7982658-3 (Version None)
Quarter: 2011Q4

REPORT INFORMATION
  Report Type: 
  Country: None (occurrence: None)
  Receive Date: 20111215
  Receipt Date: 20111212
  Transmission Date: 20120403
  Serious: Yes (Hospitalization)
  Sender: FDA-Public Use
  Company Number: FR-ABBOTT-11P-056-0849422-00

PATIENT
  Sex: Female

DRUGS (13)
  1. PRAVASTATIN [Concomitant]
     Indication: PRODUCT USED FOR UNKNOWN INDICATION
  2. KLEAN PREP [Interacting]
     Indication: COLONOSCOPY
     Dosage: REGIMEN #1
     Route: 048
     Dates: start: 20110726, end: 20110726
  3. PROPOFOL [Concomitant]
     Indication: PRODUCT USED FOR UNKNOWN INDICATION
     Dates: start: 20110726, end: 20110726
  4. AMARYL [Concomitant]
     Indication: PRODUCT USED FOR UNKNOWN INDICATION
     Dates: end: 20110802
  5. LANSOPRAZOLE [Concomitant]
     Indication: PRODUCT USED FOR UNKNOWN INDICATION
     Dates: start: 20100101
  6. ATARAX [Concomitant]
     Indication: PRODUCT USED FOR UNKNOWN INDICATION
  7. NEBIVOLOL HCL [Concomitant]
     Indication: PRODUCT USED FOR UNKNOWN INDICATION
  8. PLAVIX [Concomitant]
     Indication: PRODUCT USED FOR UNKNOWN INDICATION
  9. MEDIATENSYL [Concomitant]
     Indication: PRODUCT USED FOR UNKNOWN INDICATION
  10. INDAPAMIDE [Interacting]
     Indication: HYPERTENSION
     Dosage: COATED
     Route: 048
     Dates: end: 20110802
  11. MIDAZOLAM [Concomitant]
     Indication: PRODUCT USED FOR UNKNOWN INDICATION
     Dates: start: 20110726, end: 20110726
  12. METFORMIN HCL [Concomitant]
     Indication: PRODUCT USED FOR UNKNOWN INDICATION
     Dates: start: 20080101, end: 20110802
  13. PERINDOPRIL [Suspect]
     Indication: HYPERTENSION
     Dosage: REGIMEN #1
     Route: 048
     Dates: start: 20080101, end: 20110802

REACTIONS (7)
  - DEHYDRATION [None]
  - HYPOGLYCAEMIA [None]
  - RENAL FAILURE ACUTE [None]
  - DRUG INTERACTION [None]
  - WEIGHT INCREASED [None]
  - RENAL ARTERY STENOSIS [None]
  - BACTERIURIA [None]
